FAERS Safety Report 18898598 (Version 3)
Quarter: 2023Q4

REPORT INFORMATION
  Report Type: Spontaneous
  Country: US (occurrence: US)
  Receive Date: 20210216
  Receipt Date: 20231031
  Transmission Date: 20240110
  Serious: Yes (Other)
  Sender: FDA-Public Use
  Company Number: US-GILEAD-2021-0515747

PATIENT
  Age: 56 Year
  Sex: Male
  Weight: 89.796 kg

DRUGS (54)
  1. VIREAD [Suspect]
     Active Substance: TENOFOVIR DISOPROXIL FUMARATE
     Indication: HIV infection
     Dosage: UNK
     Route: 048
     Dates: start: 2001
  2. VIREAD [Suspect]
     Active Substance: TENOFOVIR DISOPROXIL FUMARATE
     Dosage: UNK
     Route: 048
     Dates: start: 2002, end: 201708
  3. VIREAD [Suspect]
     Active Substance: TENOFOVIR DISOPROXIL FUMARATE
     Dosage: UNK
     Route: 048
     Dates: start: 201709, end: 201801
  4. VIREAD [Suspect]
     Active Substance: TENOFOVIR DISOPROXIL FUMARATE
     Dosage: UNK
     Route: 048
     Dates: start: 201210, end: 201708
  5. TRUVADA [Suspect]
     Active Substance: EMTRICITABINE\TENOFOVIR DISOPROXIL FUMARATE
     Indication: HIV infection
     Dosage: UNK
     Route: 048
     Dates: start: 200907, end: 201210
  6. DESCOVY [Concomitant]
     Active Substance: EMTRICITABINE\TENOFOVIR ALAFENAMIDE FUMARATE
  7. COMBIVIR [Concomitant]
     Active Substance: LAMIVUDINE\ZIDOVUDINE
  8. EPIVIR [Concomitant]
     Active Substance: LAMIVUDINE
  9. LEXIVA [Concomitant]
     Active Substance: FOSAMPRENAVIR CALCIUM
  10. NORVIR [Concomitant]
     Active Substance: RITONAVIR
  11. SUSTIVA [Concomitant]
     Active Substance: EFAVIRENZ
  12. TIVICAY [Concomitant]
     Active Substance: DOLUTEGRAVIR SODIUM
  13. ZERIT [Concomitant]
     Active Substance: STAVUDINE
  14. ACYCLOVIR [Concomitant]
     Active Substance: ACYCLOVIR
  15. ALBUTEROL [Concomitant]
     Active Substance: ALBUTEROL
  16. ATORVASTATIN [Concomitant]
     Active Substance: ATORVASTATIN
  17. BETAMETHASONE VALERATE [Concomitant]
     Active Substance: BETAMETHASONE VALERATE
  18. BRILINTA [Concomitant]
     Active Substance: TICAGRELOR
  19. BUPROPION [Concomitant]
     Active Substance: BUPROPION
  20. CARISOPRODOL [Concomitant]
     Active Substance: CARISOPRODOL
  21. CEPHALEXIN [Concomitant]
     Active Substance: CEPHALEXIN
  22. CLONAZEPAM [Concomitant]
     Active Substance: CLONAZEPAM
  23. DOXEPIN [Concomitant]
     Active Substance: DOXEPIN
  24. DOXYCYCLINE HYCLATE [Concomitant]
     Active Substance: DOXYCYCLINE HYCLATE
  25. FLUCONAZOLE [Concomitant]
     Active Substance: FLUCONAZOLE
  26. FUROSEMIDE [Concomitant]
     Active Substance: FUROSEMIDE
  27. HYDROCORTISONE [Concomitant]
     Active Substance: HYDROCORTISONE
  28. HYDROXYZINE [Concomitant]
     Active Substance: HYDROXYZINE HYDROCHLORIDE
  29. HYDROXYZINE PAMOATE [Concomitant]
     Active Substance: HYDROXYZINE PAMOATE
  30. LACTULOSE [Concomitant]
     Active Substance: LACTULOSE
  31. LAMIVUDINE [Concomitant]
     Active Substance: LAMIVUDINE
  32. LEVOTHYROXINE [Concomitant]
     Active Substance: LEVOTHYROXINE
  33. LINEZOLID [Concomitant]
     Active Substance: LINEZOLID
  34. LINZESS [Concomitant]
     Active Substance: LINACLOTIDE
  35. LISINOPRIL [Concomitant]
     Active Substance: LISINOPRIL
  36. METOPROLOL TARTRATE [Concomitant]
     Active Substance: METOPROLOL TARTRATE
  37. MINOCYCLINE [Concomitant]
     Active Substance: MINOCYCLINE HYDROCHLORIDE
  38. MUPIROCIN [Concomitant]
     Active Substance: MUPIROCIN
  39. NITROGLYCERIN [Concomitant]
     Active Substance: NITROGLYCERIN
  40. NYSTATIN AND TRIAMCINOLONE [Concomitant]
     Active Substance: NYSTATIN\TRIAMCINOLONE ACETONIDE
  41. OMEPRAZOLE [Concomitant]
     Active Substance: OMEPRAZOLE
  42. OZEMPIC [Concomitant]
     Active Substance: SEMAGLUTIDE
  43. POTASSIUM [Concomitant]
     Active Substance: POTASSIUM
  44. PRAZOSIN [Concomitant]
     Active Substance: PRAZOSIN
  45. PREDNISONE [Concomitant]
     Active Substance: PREDNISONE
  46. PROAIR HFA [Concomitant]
     Active Substance: ALBUTEROL SULFATE
  47. PROVENTIL HFA [SALBUTAMOL] [Concomitant]
  48. QVAR [Concomitant]
     Active Substance: BECLOMETHASONE DIPROPIONATE
  49. SILVER SULFADIAZINE [Concomitant]
     Active Substance: SILVER SULFADIAZINE
  50. SPIRONOLACTONE [Concomitant]
     Active Substance: SPIRONOLACTONE
  51. SULFAMETHOXAZOLE [Concomitant]
     Active Substance: SULFAMETHOXAZOLE
  52. SUPREP BOWEL PREP [Concomitant]
     Active Substance: MAGNESIUM SULFATE\POTASSIUM SULFATE\SODIUM SULFATE
  53. TRIAMCINOLONE [Concomitant]
     Active Substance: TRIAMCINOLONE
  54. VENTOLIN [Concomitant]
     Active Substance: ALBUTEROL SULFATE

REACTIONS (8)
  - Osteoporosis [Not Recovered/Not Resolved]
  - Bone demineralisation [Unknown]
  - Pain [Not Recovered/Not Resolved]
  - Emotional distress [Not Recovered/Not Resolved]
  - Anxiety [Not Recovered/Not Resolved]
  - Anhedonia [Not Recovered/Not Resolved]
  - Musculoskeletal disorder [Unknown]
  - Rib fracture [Recovered/Resolved]

NARRATIVE: CASE EVENT DATE: 20170509
